FAERS Safety Report 6616824-6 (Version None)
Quarter: 2010Q1

REPORT INFORMATION
  Report Type: 
  Country: None (occurrence: None)
  Receive Date: 20100301
  Receipt Date: 20100223
  Transmission Date: 20100710
  Serious: Yes (Hospitalization)
  Sender: FDA-Public Use
  Company Number: ALL1-2010-00912

PATIENT
  Age: 56 Year
  Sex: Male

DRUGS (1)
  1. FOSRENOL [Suspect]
     Indication: HYPERPHOSPHATAEMIA
     Dosage: 1000 MG, OTHER (2) TABLETS WITH MEALS, ORAL
     Route: 048
     Dates: start: 20080101

REACTIONS (3)
  - ABDOMINAL INFECTION [None]
  - HERNIA [None]
  - THROMBOSIS [None]
